FAERS Safety Report 4277694-7 (Version None)
Quarter: 2004Q1

REPORT INFORMATION
  Report Type: 
  Country: None (occurrence: None)
  Receive Date: 20040121
  Receipt Date: 20040106
  Transmission Date: 20041129
  Serious: Yes (Other)
  Sender: FDA-Public Use
  Company Number: GBS040114231

PATIENT
  Age: 20 Year
  Sex: Male
  Weight: 69 kg

DRUGS (3)
  1. FLUOXETINE [Suspect]
     Indication: DEPRESSION
     Dosage: 20 UG/DAY
     Dates: start: 20031111, end: 20031101
  2. CO-DYDRAMOL [Concomitant]
  3. IBUPROFEN [Concomitant]

REACTIONS (2)
  - ANGER [None]
  - EMOTIONAL DISORDER [None]
